FAERS Safety Report 6530164-5 (Version None)
Quarter: 2010Q1

REPORT INFORMATION
  Report Type: 
  Country: None (occurrence: None)
  Receive Date: 20100107
  Receipt Date: 20091229
  Transmission Date: 20100710
  Serious: Yes (Hospitalization)
  Sender: FDA-Public Use
  Company Number: DE-AMGEN-US383038

PATIENT
  Age: 50 Year
  Sex: Female

DRUGS (5)
  1. ENBREL [Suspect]
     Indication: RHEUMATOID ARTHRITIS
     Route: 058
     Dates: start: 20071201
  2. FUROSEMIDE [Concomitant]
     Dosage: UNKNOWN
     Route: 065
  3. OMEPRAZOLE [Concomitant]
     Dosage: UNKNOWN
     Route: 065
  4. LANTAREL [Concomitant]
     Dosage: FROM AN UNSPECIFIED DATE 20MG (FREQUENCY UNKNOWN) AND THEN REDUCED TO 7.5MG (FREQUENCY UNKNOWN)
     Route: 065
  5. GLUCOCORTICOIDS [Concomitant]
     Dosage: 15MG (FREQUENCY UNKNOWN)
     Route: 065

REACTIONS (1)
  - KNEE OPERATION [None]
